FAERS Safety Report 9526424 (Version 2)
Quarter: 2013Q4

REPORT INFORMATION
  Report Type: Spontaneous
  Country: GB (occurrence: GB)
  Receive Date: 20130916
  Receipt Date: 20131028
  Transmission Date: 20140711
  Serious: Yes (Hospitalization, Other)
  Sender: FDA-Public Use
  Company Number: GB-ACTAVIS-2013-15914

PATIENT
  Age: 58 Year
  Sex: Male
  Weight: 83 kg

DRUGS (4)
  1. GABAPENTIN (UNKNOWN) [Suspect]
     Indication: SCIATICA
     Dosage: 600 MG, TID
     Route: 048
     Dates: start: 201307, end: 20130820
  2. TOSTRAN [Concomitant]
     Indication: PRODUCT USED FOR UNKNOWN INDICATION
     Dosage: 2 %, UNK
     Route: 065
     Dates: start: 200610
  3. PROTELOS [Concomitant]
     Indication: PRODUCT USED FOR UNKNOWN INDICATION
     Dosage: 2 G, UNK
     Route: 065
     Dates: start: 201010
  4. ARCOXIA [Concomitant]
     Indication: PRODUCT USED FOR UNKNOWN INDICATION
     Dosage: 30 MG, UNK
     Route: 065
     Dates: start: 201306

REACTIONS (3)
  - Dysuria [Recovered/Resolved]
  - Blood urine present [Recovered/Resolved]
  - Drug ineffective [Unknown]
